FAERS Safety Report 15621972 (Version 1)
Quarter: 2018Q4

REPORT INFORMATION
  Report Type: Report from Study
  Country: CA (occurrence: CA)
  Receive Date: 20181115
  Receipt Date: 20181115
  Transmission Date: 20190205
  Serious: Yes (Other)
  Sender: FDA-Public Use
  Company Number: CA-PFIZER INC-2018469797

PATIENT
  Age: 54 Year
  Sex: Female

DRUGS (35)
  1. FENTANYL TEVA [Concomitant]
     Active Substance: FENTANYL
     Dosage: UNK
  2. CYCLOBENZAPRINE. [Concomitant]
     Active Substance: CYCLOBENZAPRINE
     Dosage: UNK
  3. VIOKACE [Concomitant]
     Active Substance: PANCRELIPASE AMYLASE\PANCRELIPASE LIPASE\PANCRELIPASE PROTEASE
     Dosage: UNK
  4. PMS GABAPENTIN [Concomitant]
     Dosage: UNK
  5. PENNSAID [Concomitant]
     Active Substance: DICLOFENAC SODIUM
     Indication: ARTHRITIS
  6. PMS-NYSTATIN [Concomitant]
     Dosage: UNK
  7. ENTYVIO [Suspect]
     Active Substance: VEDOLIZUMAB
     Dosage: 300 MG, Q4WEEKS
     Route: 042
     Dates: start: 20170121
  8. SPIRONOLACTONE TEVA [Concomitant]
     Active Substance: SPIRONOLACTONE
     Dosage: UNK
  9. FLEXERIL [CYCLOBENZAPRINE HYDROCHLORIDE] [Concomitant]
     Dosage: UNK
  10. LUPRON DEPOT-PED [Concomitant]
     Active Substance: LEUPROLIDE ACETATE
     Dosage: UNK
  11. VITAMIN B12 [Concomitant]
     Active Substance: CYANOCOBALAMIN
     Dosage: UNK
  12. ORACORT [TRIAMCINOLONE ACETONIDE] [Concomitant]
     Dosage: UNK
  13. CYANOCOBALAMIN. [Concomitant]
     Active Substance: CYANOCOBALAMIN
     Dosage: UNK
  14. FUROSEMIDE TEVA [Concomitant]
     Active Substance: FUROSEMIDE
     Dosage: UNK
  15. ZOPICLONE [Concomitant]
     Active Substance: ZOPICLONE
     Dosage: UNK
  16. ACTIVATED CHARCOAL. [Concomitant]
     Active Substance: ACTIVATED CHARCOAL
     Dosage: UNK
  17. TECTA [Suspect]
     Active Substance: PANTOPRAZOLE MAGNESIUM
     Indication: DYSPEPSIA
     Dosage: UNK, TID
     Route: 065
  18. CELEXA [CITALOPRAM HYDROBROMIDE] [Concomitant]
     Dosage: UNK
  19. STIEVA A [Concomitant]
     Dosage: UNK
  20. IMODIUM [Concomitant]
     Active Substance: LOPERAMIDE HYDROCHLORIDE
     Dosage: UNK
  21. BENADRYL [Concomitant]
     Active Substance: DIPHENHYDRAMINE HYDROCHLORIDE
     Indication: HYPERSENSITIVITY
     Dosage: UNK
  22. ENTYVIO [Suspect]
     Active Substance: VEDOLIZUMAB
     Indication: CROHN^S DISEASE
     Dosage: 300 MG, UNK
     Route: 042
     Dates: start: 20160829
  23. CLONAZEPAM. [Concomitant]
     Active Substance: CLONAZEPAM
     Dosage: UNK
  24. PMS-HYDROMORPHONE [Concomitant]
     Active Substance: HYDROMORPHONE HYDROCHLORIDE
     Dosage: UNK
  25. FUCIDIN [FUSIDIC ACID] [Concomitant]
     Dosage: UNK
  26. ESTRACE [Concomitant]
     Active Substance: ESTRADIOL
     Dosage: UNK
  27. DICLECTIN [Concomitant]
     Active Substance: DOXYLAMINE SUCCINATE\PYRIDOXINE HYDROCHLORIDE
     Dosage: UNK
  28. BENZAMYCIN [Concomitant]
     Active Substance: BENZOYL PEROXIDE\ERYTHROMYCIN
     Dosage: UNK
  29. SYNTHROID [Concomitant]
     Active Substance: LEVOTHYROXINE SODIUM
     Dosage: UNK
  30. PMS VALACYCLOVIR [Concomitant]
     Dosage: UNK
  31. PROGESTERONE TEVA [Concomitant]
     Active Substance: PROGESTERONE
     Dosage: UNK
  32. LOMOTIL [ATROPINE SULFATE;DIPHENOXYLATE HYDROCHLORIDE] [Concomitant]
     Dosage: UNK
  33. CREON [Concomitant]
     Active Substance: PANCRELIPASE AMYLASE\PANCRELIPASE LIPASE\PANCRELIPASE PROTEASE
     Dosage: UNK
  34. PENNSAID [Concomitant]
     Active Substance: DICLOFENAC SODIUM
     Indication: PAIN
     Dosage: UNK
  35. DESLORATADINE. [Concomitant]
     Active Substance: DESLORATADINE
     Dosage: UNK

REACTIONS (1)
  - Cataract [Unknown]
